FAERS Safety Report 6112247-7 (Version None)
Quarter: 2009Q1

REPORT INFORMATION
  Report Type: 
  Country: None (occurrence: None)
  Receive Date: 20090310
  Receipt Date: 20090226
  Transmission Date: 20090719
  Serious: Yes (Death, Other)
  Sender: FDA-Public Use
  Company Number: FABR-1000673

PATIENT
  Age: 34 Year
  Sex: Male
  Weight: 112 kg

DRUGS (10)
  1. FABRAZYME [Suspect]
     Indication: FABRY'S DISEASE
     Dosage: 105 MG, Q2W, INTRAVENOUS
     Route: 042
     Dates: start: 20040916, end: 20090101
  2. ALLOPURINOL [Concomitant]
  3. ATORVASTATIN CALCIUM [Concomitant]
  4. EZETIMIBE [Concomitant]
  5. IRBESARTAN [Concomitant]
  6. VERAPAMIL [Concomitant]
  7. COLCHICINE (COLCHICINE) [Concomitant]
  8. PANTOPRAZOLE SODIUM [Concomitant]
  9. TOPIRAMATE [Concomitant]
  10. ASPIRIN [Concomitant]

REACTIONS (4)
  - GASTROINTESTINAL HAEMORRHAGE [None]
  - MYOCARDIAL INFARCTION [None]
  - PULMONARY EMBOLISM [None]
  - SUDDEN CARDIAC DEATH [None]
